FAERS Safety Report 4778790-8 (Version None)
Quarter: 2005Q3

REPORT INFORMATION
  Report Type: 
  Country: None (occurrence: None)
  Receive Date: 20050922
  Receipt Date: 20050912
  Transmission Date: 20060218
  Serious: Yes (Hospitalization)
  Sender: FDA-Public Use
  Company Number: 2005127195

PATIENT
  Age: 32 Year
  Sex: Female

DRUGS (4)
  1. FRAGMIN [Suspect]
     Indication: ILL-DEFINED DISORDER
     Dates: start: 20030818, end: 20041003
  2. CITODON (CODEINE PHOSPHATE, PARACETAMOL) [Suspect]
     Indication: MIGRAINE
     Dosage: ORAL
     Route: 048
     Dates: start: 20030101
  3. HEPARIN [Concomitant]
  4. WARFARIN SODIUM [Concomitant]

REACTIONS (10)
  - ANGIOPATHY [None]
  - DRUG EXPOSURE DURING PREGNANCY [None]
  - GENITAL CANDIDIASIS [None]
  - HEADACHE [None]
  - INFARCTION [None]
  - INTRA-UTERINE DEATH [None]
  - PLACENTAL DISORDER [None]
  - PREGNANCY [None]
  - THROMBOSIS [None]
  - UMBILICAL CORD VASCULAR DISORDER [None]
